FAERS Safety Report 15135213 (Version 1)
Quarter: 2018Q3

REPORT INFORMATION
  Report Type: Report from Study
  Country: None (occurrence: US)
  Receive Date: 20180712
  Receipt Date: 20180712
  Transmission Date: 20181010
  Serious: Yes (Other)
  Sender: FDA-Public Use
  Company Number: US-ABBVIE-18K-163-2415056-00

PATIENT
  Age: 22 Year
  Sex: Female

DRUGS (1)
  1. HUMIRA [Suspect]
     Active Substance: ADALIMUMAB
     Indication: CROHN^S DISEASE
     Route: 058
     Dates: start: 201707, end: 201712

REACTIONS (13)
  - Agitation [Unknown]
  - Influenza [Unknown]
  - Pneumonia [Unknown]
  - Injection site rash [Recovered/Resolved]
  - Sinusitis [Unknown]
  - Ileal stenosis [Recovered/Resolved]
  - Crohn^s disease [Recovered/Resolved]
  - Injection site papule [Recovered/Resolved]
  - Bronchitis [Unknown]
  - Injection site vesicles [Recovered/Resolved]
  - Injection site bruising [Recovered/Resolved]
  - Injection site erythema [Recovered/Resolved]
  - Nasopharyngitis [Unknown]

NARRATIVE: CASE EVENT DATE: 2017
